FAERS Safety Report 4985486-6 (Version None)
Quarter: 2006Q2

REPORT INFORMATION
  Report Type: 
  Country: None (occurrence: None)
  Receive Date: 20060428
  Receipt Date: 20050426
  Transmission Date: 20061013
  Serious: No
  Sender: FDA-Public Use
  Company Number: US-GLAXOSMITHKLINE-A0555828A

PATIENT
  Age: 88 Year
  Sex: Female

DRUGS (3)
  1. FLOVENT [Suspect]
     Indication: ASTHMA
     Dosage: 110MCG TWICE PER DAY
     Route: 055
  2. ZOCOR [Concomitant]
  3. UNKNOWN MEDICATION [Concomitant]

REACTIONS (4)
  - DYSPHONIA [None]
  - HEADACHE [None]
  - RHINORRHOEA [None]
  - SNEEZING [None]
